FAERS Safety Report 16046280 (Version 1)
Quarter: 2019Q1

REPORT INFORMATION
  Report Type: Spontaneous
  Country: US (occurrence: US)
  Receive Date: 20190207
  Receipt Date: 20190207
  Transmission Date: 20190418
  Serious: Yes (Hospitalization)
  Sender: FDA-Public Use
  Company Number: None

PATIENT
  Age: 65 Year
  Sex: Female
  Weight: 76.7 kg

DRUGS (4)
  1. LEUCOVORIN CALCIUM. [Concomitant]
     Active Substance: LEUCOVORIN CALCIUM
     Dates: end: 20180530
  2. XELODA [Concomitant]
     Active Substance: CAPECITABINE
     Dates: end: 20180809
  3. ELOXATIN [Concomitant]
     Active Substance: OXALIPLATIN
     Dates: end: 20180530
  4. 5-FLUOROURACIL (5-FU) [Suspect]
     Active Substance: FLUOROURACIL
     Dates: end: 20180530

REACTIONS (2)
  - Female genital tract fistula [None]
  - Enterococcal infection [None]

NARRATIVE: CASE EVENT DATE: 20181011
